FAERS Safety Report 9571237 (Version 1)
Quarter: 2013Q3

REPORT INFORMATION
  Report Type: Spontaneous
  Country: US (occurrence: None)
  Receive Date: 20130927
  Receipt Date: 20130927
  Transmission Date: 20140515
  Serious: No
  Sender: FDA-Public Use
  Company Number: None

PATIENT
  Age: 31 Year
  Sex: Female

DRUGS (1)
  1. FLAGYL [Suspect]

REACTIONS (3)
  - Anal fissure [None]
  - Haemorrhoids [None]
  - Food intolerance [None]
